FAERS Safety Report 13034700 (Version 1)
Quarter: 2016Q4

REPORT INFORMATION
  Report Type: Spontaneous
  Country: US (occurrence: US)
  Receive Date: 20161216
  Receipt Date: 20161216
  Transmission Date: 20170207
  Serious: No
  Sender: FDA-Public Use
  Company Number: US-BAUSCH-BL-2016-020449

PATIENT
  Age: 80 Year
  Sex: Female
  Weight: 72.64 kg

DRUGS (10)
  1. FLONASE [Concomitant]
     Active Substance: FLUTICASONE PROPIONATE
     Indication: NASAL CONGESTION
  2. LEVOTHYROXINE. [Concomitant]
     Active Substance: LEVOTHYROXINE
     Indication: THYROID CYST
  3. TIMOPTIC [Suspect]
     Active Substance: TIMOLOL MALEATE
     Indication: INTRAOCULAR PRESSURE INCREASED
     Dosage: IN THE LEFT EYE.
     Route: 047
     Dates: start: 20160622, end: 20160622
  4. MENEST [Concomitant]
     Active Substance: ESTROGENS, ESTERIFIED
     Indication: HORMONE REPLACEMENT THERAPY
  5. ACIDOPHILUS [Concomitant]
     Active Substance: LACTOBACILLUS ACIDOPHILUS
     Indication: COLITIS ULCERATIVE
  6. ZANTAC [Concomitant]
     Active Substance: RANITIDINE HYDROCHLORIDE
     Indication: GASTROINTESTINAL DISORDER
  7. SIMVASTATIN. [Concomitant]
     Active Substance: SIMVASTATIN
     Indication: HYPERLIPIDAEMIA
  8. ATENOLOL. [Concomitant]
     Active Substance: ATENOLOL
     Indication: HEART RATE IRREGULAR
  9. MOBIC [Concomitant]
     Active Substance: MELOXICAM
     Indication: ANKYLOSING SPONDYLITIS
  10. ALDACTAZIDE [Concomitant]
     Active Substance: HYDROCHLOROTHIAZIDE\SPIRONOLACTONE
     Indication: FLUID RETENTION

REACTIONS (5)
  - Nausea [Recovered/Resolved]
  - Headache [Recovered/Resolved]
  - Skin swelling [Recovered/Resolved]
  - Eye swelling [Recovered/Resolved]
  - Ocular hyperaemia [Recovered/Resolved]

NARRATIVE: CASE EVENT DATE: 201606
